FAERS Safety Report 25586684 (Version 1)
Quarter: 2025Q3

REPORT INFORMATION
  Report Type: Spontaneous
  Country: US (occurrence: None)
  Receive Date: 20250720
  Receipt Date: 20250720
  Transmission Date: 20251020
  Serious: Yes (Disabling)
  Sender: FDA-CTU
  Company Number: None

PATIENT
  Age: 71 Year
  Sex: Female
  Weight: 63.45 kg

DRUGS (6)
  1. ELIQUIS [Suspect]
     Active Substance: APIXABAN
     Indication: Product used for unknown indication
  2. Livothorax [Concomitant]
  3. TIKOSYN [Concomitant]
     Active Substance: DOFETILIDE
  4. ELIQUIS [Concomitant]
     Active Substance: APIXABAN
  5. MAGNESIUM [Concomitant]
     Active Substance: MAGNESIUM
  6. VITAMIN D [Concomitant]
     Active Substance: VITAMIN D NOS

REACTIONS (2)
  - Fatigue [None]
  - Fatigue [None]

NARRATIVE: CASE EVENT DATE: 20250712
